FAERS Safety Report 7898475-9 (Version None)
Quarter: 2011Q4

REPORT INFORMATION
  Report Type: 
  Country: None (occurrence: None)
  Receive Date: 20111107
  Receipt Date: 20111026
  Transmission Date: 20120403
  Serious: Yes (Hospitalization)
  Sender: FDA-Public Use
  Company Number: US-BAYER-2011-062577

PATIENT
  Age: 23 Year
  Sex: Female
  Weight: 77.098 kg

DRUGS (5)
  1. YAZ [Suspect]
     Indication: CONTRACEPTION
     Dosage: UNK
     Dates: start: 20071227, end: 20080301
  2. NSAID'S [Concomitant]
  3. KETOROLAC TROMETHAMINE [Concomitant]
     Indication: PAIN
     Dosage: 10 MG, QID
     Route: 048
     Dates: start: 20090701, end: 20090801
  4. YAZ [Suspect]
     Indication: PREMENSTRUAL SYNDROME
  5. PROMETHAZINE [Concomitant]
     Indication: HYPERSENSITIVITY
     Dosage: 25 MG, QID
     Route: 048
     Dates: start: 20090701, end: 20090801

REACTIONS (7)
  - CHOLECYSTITIS CHRONIC [None]
  - EMOTIONAL DISTRESS [None]
  - CHOLELITHIASIS [None]
  - BILIARY DYSKINESIA [None]
  - PAIN [None]
  - ABDOMINAL PAIN [None]
  - BILIARY COLIC [None]
